FAERS Safety Report 6689386-5 (Version None)
Quarter: 2010Q2

REPORT INFORMATION
  Report Type: 
  Country: None (occurrence: None)
  Receive Date: 20100419
  Receipt Date: 20100419
  Transmission Date: 20101027
  Serious: Yes (Hospitalization)
  Sender: FDA-Public Use
  Company Number: None

PATIENT
  Sex: Female
  Weight: 67.6 kg

DRUGS (2)
  1. CISPLATIN [Suspect]
     Dosage: 127 MG
     Dates: end: 20100329
  2. ALIMTA [Suspect]
     Dosage: 548 MG
     Dates: end: 20100329

REACTIONS (6)
  - BLOOD PRESSURE SYSTOLIC INCREASED [None]
  - BRONCHITIS [None]
  - PNEUMONIA [None]
  - PRODUCTIVE COUGH [None]
  - PYREXIA [None]
  - WHITE BLOOD CELL COUNT INCREASED [None]
